FAERS Safety Report 22840969 (Version 5)
Quarter: 2023Q4

REPORT INFORMATION
  Report Type: Spontaneous
  Country: DE (occurrence: DE)
  Receive Date: 20230819
  Receipt Date: 20231026
  Transmission Date: 20240110
  Serious: Yes (Hospitalization)
  Sender: FDA-Public Use
  Company Number: DE-BoehringerIngelheim-2023-BI-255760

PATIENT
  Age: 63 Year
  Sex: Male
  Weight: 117 kg

DRUGS (15)
  1. JARDIANCE [Suspect]
     Active Substance: EMPAGLIFLOZIN
     Indication: Type 2 diabetes mellitus
     Dates: start: 20230715, end: 20230801
  2. JARDIANCE [Suspect]
     Active Substance: EMPAGLIFLOZIN
     Indication: Cardiac failure
  3. ASS AL 100 TAH [Concomitant]
     Indication: Product used for unknown indication
     Dosage: 1-0-0-0
     Route: 048
  4. Olmesartan/Amlodipin - 1A Pharma 20mg/5 mg Filmtabletten [Concomitant]
     Indication: Product used for unknown indication
     Dosage: 1-0-0-0
     Route: 048
  5. HCT-1 A Pharma 12.5 mg Tabletten [Concomitant]
     Indication: Product used for unknown indication
     Dosage: 1-0-0-0
     Route: 048
  6. Atorvastatin STADA 40 mg Filmtabletten [Concomitant]
     Indication: Product used for unknown indication
     Dosage: 0-0-1-0
     Route: 048
  7. Paroxetin STADA 20 mg Filmtabletten [Concomitant]
     Indication: Product used for unknown indication
     Dosage: 1-0-0-0
     Route: 048
  8. Tamsulosinhydrochlorid PUREN 0.4 mg Retardkapseln [Concomitant]
     Indication: Product used for unknown indication
     Dosage: 1-0-0-0
     Route: 048
  9. Allopurinol 100 Heumann [Concomitant]
     Indication: Product used for unknown indication
     Dosage: 1-0-0-0
     Route: 048
  10. Budesonid Easyhaler 0.4mg/Dosis Pulver zur Inhalation [Concomitant]
     Indication: Product used for unknown indication
     Dosage: 1-0-0-0
     Route: 055
  11. FORMOTEROL FUMARATE [Concomitant]
     Active Substance: FORMOTEROL FUMARATE
     Indication: Product used for unknown indication
     Dosage: 0-0-1-0
     Route: 055
  12. Salbutamol AL N 0.1 mg/Spr?hsto? Druckgasinhalation, Suspension [Concomitant]
     Indication: Product used for unknown indication
     Dosage: 1-0-0-0
     Route: 055
  13. Ibuflam 800 mg Lichtenstein, Filmtabletten [Concomitant]
     Indication: Product used for unknown indication
     Dosage: 1-0-1-0
     Route: 048
  14. OMEP 20 mg, magensaftresistente Hartkapseln [Concomitant]
     Indication: Product used for unknown indication
     Dosage: 1-0-0-0
     Route: 048
  15. Spironolacton Accord 25 mg Filmtabletten [Concomitant]
     Indication: Product used for unknown indication
     Dosage: 1-0-0-0
     Route: 048

REACTIONS (11)
  - Renal pain [Recovered/Resolved]
  - Infection [Recovering/Resolving]
  - Urosepsis [Recovering/Resolving]
  - Cystitis [Recovered/Resolved]
  - Acute kidney injury [Recovered/Resolved]
  - Dysuria [Recovered/Resolved]
  - Pyrexia [Recovered/Resolved]
  - Chills [Recovered/Resolved]
  - Blood urine present [Recovered/Resolved]
  - Glucose urine present [Recovered/Resolved]
  - Haematological infection [Recovered/Resolved]

NARRATIVE: CASE EVENT DATE: 20230724
